FAERS Safety Report 5802669-3 (Version None)
Quarter: 2008Q3

REPORT INFORMATION
  Report Type: 
  Country: None (occurrence: None)
  Receive Date: 20080703
  Receipt Date: 20080623
  Transmission Date: 20090109
  Serious: Yes (Hospitalization)
  Sender: FDA-Public Use
  Company Number: Z002-301-4-0033

PATIENT
  Age: 71 Year
  Sex: Female

DRUGS (14)
  1. ZONISAMIDE [Suspect]
     Indication: PARKINSON'S DISEASE
     Dosage: 50 MG, 1 IN 1 D, ORAL
     Route: 048
     Dates: start: 20030125, end: 20030207
  2. SINEMET [Concomitant]
  3. SYMMETREL [Concomitant]
  4. PARLODEL [Concomitant]
  5. CABERGOLINE [Concomitant]
  6. DEPAS (ETIZOLAM) [Concomitant]
  7. POLAPREZINC (POLAPREZINC) [Concomitant]
  8. TETRAMIDE (MIANSERIN HYDROCHLORIDE) [Concomitant]
  9. LENDORM [Concomitant]
  10. METHYL SALICYLATE (METHYL SALICYLATE) [Concomitant]
  11. PURSENNID (SENNA LEAF) [Concomitant]
  12. LUMBAGO [Concomitant]
  13. MUCODYNE (CARBOCISTEINE) [Concomitant]
  14. CLARITHROMYCIN [Concomitant]

REACTIONS (11)
  - ALTERED STATE OF CONSCIOUSNESS [None]
  - BLOOD CREATINE PHOSPHOKINASE INCREASED [None]
  - CEREBROVASCULAR DISORDER [None]
  - DEPRESSION [None]
  - DRUG TOXICITY [None]
  - FALL [None]
  - HALLUCINATION [None]
  - LICHENIFICATION [None]
  - RASH [None]
  - SUICIDE ATTEMPT [None]
  - WEIGHT DECREASED [None]
